FAERS Safety Report 9294088 (Version 1)
Quarter: 2013Q1

REPORT INFORMATION
  Report Type: Spontaneous
  Country: US (occurrence: None)
  Receive Date: 20121226
  Receipt Date: 20121226
  Transmission Date: 20140127
  Serious: Yes (Other)
  Sender: FDA-Public Use
  Company Number: 351787

PATIENT
  Age: 79 Year
  Sex: Male
  Weight: 120.2 kg

DRUGS (1)
  1. LEVEMIR [Suspect]
     Indication: TYPE 2 DIABETES MELLITUS
     Dosage: 30 UNITS IN MORNINING, SUBCUTANEOUS

REACTIONS (2)
  - Hypoglycaemic unconsciousness [None]
  - VIIth nerve paralysis [None]
